FAERS Safety Report 7219251-6 (Version None)
Quarter: 2011Q1

REPORT INFORMATION
  Report Type: 
  Country: None (occurrence: None)
  Receive Date: 20110111
  Receipt Date: 20110104
  Transmission Date: 20110831
  Serious: No
  Sender: FDA-Public Use
  Company Number: US-PFIZER INC-2011003783

PATIENT

DRUGS (1)
  1. ADVIL PM [Suspect]
     Dosage: TWO TABLETS
     Route: 048
     Dates: start: 20110103

REACTIONS (3)
  - FEELING ABNORMAL [None]
  - SOMNOLENCE [None]
  - INSOMNIA [None]
